FAERS Safety Report 10418353 (Version 1)
Quarter: 2014Q3

REPORT INFORMATION
  Report Type: Spontaneous
  Country: US (occurrence: None)
  Receive Date: 20140828
  Receipt Date: 20140828
  Transmission Date: 20150326
  Serious: No
  Sender: FDA-Public Use
  Company Number: None

PATIENT
  Age: 50 Year
  Sex: Female
  Weight: 55.34 kg

DRUGS (1)
  1. XULANE [Suspect]
     Active Substance: ETHINYL ESTRADIOL\NORELGESTROMIN
     Indication: CONTRACEPTION
     Dosage: 1 PATCH PER WEEK FOR 3 WEEKS CHANGE PATCH WEEKLY APPLIED AS MEDICATED PATCH TO SKIN
     Route: 061

REACTIONS (3)
  - Abdominal distension [None]
  - Abdominal pain upper [None]
  - Weight increased [None]

NARRATIVE: CASE EVENT DATE: 20140511
